FAERS Safety Report 8536419-7 (Version None)
Quarter: 2012Q3

REPORT INFORMATION
  Report Type: 
  Country: None (occurrence: None)
  Receive Date: 20120725
  Receipt Date: 20120723
  Transmission Date: 20120928
  Serious: Yes (Other)
  Sender: FDA-Public Use
  Company Number: US-ROCHE-1087008

PATIENT
  Sex: Female

DRUGS (3)
  1. ACTEMRA [Suspect]
     Indication: RHEUMATOID ARTHRITIS
     Route: 042
     Dates: start: 20120525
  2. ACTEMRA [Suspect]
     Dates: start: 20120622
  3. LEFLUNOMIDE [Concomitant]
     Indication: ARTHRITIS

REACTIONS (3)
  - HIP FRACTURE [None]
  - OEDEMA PERIPHERAL [None]
  - ARTHRALGIA [None]
